FAERS Safety Report 14720662 (Version 1)
Quarter: 2018Q2

REPORT INFORMATION
  Report Type: Report from Study
  Country: US (occurrence: US)
  Receive Date: 20180405
  Receipt Date: 20180405
  Transmission Date: 20180711
  Serious: Yes (Hospitalization)
  Sender: FDA-Public Use
  Company Number: US-JNJFOC-20180404638

PATIENT
  Age: 60 Year
  Sex: Female

DRUGS (1)
  1. IMBRUVICA [Suspect]
     Active Substance: IBRUTINIB
     Indication: RICHTER^S SYNDROME
     Route: 048
     Dates: start: 20171019

REACTIONS (4)
  - Adverse event [Unknown]
  - Off label use [Unknown]
  - Gastrooesophageal reflux disease [Unknown]
  - Product use in unapproved indication [Unknown]

NARRATIVE: CASE EVENT DATE: 20171019
